FAERS Safety Report 26207648 (Version 1)
Quarter: 2025Q4

REPORT INFORMATION
  Report Type: Spontaneous
  Country: US (occurrence: None)
  Receive Date: 20251224
  Receipt Date: 20251224
  Transmission Date: 20260117
  Serious: Yes (unspecified)
  Sender: FDA-CTU
  Company Number: None

PATIENT
  Age: 82 Year
  Sex: Female

DRUGS (9)
  1. TALTZ [Suspect]
     Active Substance: IXEKIZUMAB
     Indication: Psoriatic arthropathy
     Dosage: 80 MG ONCE A MONTH SUBCUTANEOUS
     Route: 058
  2. LISINOPRIL [Concomitant]
     Active Substance: LISINOPRIL
  3. ANASTROZOLE [Concomitant]
     Active Substance: ANASTROZOLE
  4. ALBUTEROL HFA 90MCG (7GM) AER [Concomitant]
  5. FLUTIC/SALMETER 500/50MCG AER [Concomitant]
  6. VITAMIN D3(CHOLE) 2,000IU TAB [Concomitant]
  7. BENADRYL 25MG       TAB [Concomitant]
  8. FAMOTIDINE 20MG     TAB [Concomitant]
  9. TYLENOL 325MG       TAB [Concomitant]

REACTIONS (1)
  - Fungal infection [None]

NARRATIVE: CASE EVENT DATE: 20250101
